FAERS Safety Report 10538943 (Version 3)
Quarter: 2015Q1

REPORT INFORMATION
  Report Type: Spontaneous
  Country: US (occurrence: US)
  Receive Date: 20141023
  Receipt Date: 20150120
  Transmission Date: 20150720
  Serious: Yes (Hospitalization, Other)
  Sender: FDA-Public Use
  Company Number: US-GLAXOSMITHKLINE-US2014GSK010054

PATIENT
  Age: 44 Year
  Sex: Male

DRUGS (3)
  1. ADVIL [Concomitant]
     Active Substance: IBUPROFEN
  2. LAMICTAL [Suspect]
     Active Substance: LAMOTRIGINE
     Indication: POST-TRAUMATIC EPILEPSY
     Dosage: UNK UNK, U
     Route: 065
     Dates: start: 201307
  3. LAMOTRIGINE. [Suspect]
     Active Substance: LAMOTRIGINE
     Indication: POST-TRAUMATIC EPILEPSY
     Dosage: UNK, U
     Route: 048
     Dates: start: 201307

REACTIONS (9)
  - Brain operation [Recovered/Resolved]
  - Post procedural swelling [Recovered/Resolved]
  - Cranioplasty [Recovered/Resolved]
  - Seizure [Recovered/Resolved]
  - Brain injury [Unknown]
  - Anticonvulsant drug level below therapeutic [Recovered/Resolved]
  - Memory impairment [Unknown]
  - Drug effect decreased [Recovered/Resolved]
  - Emotional disorder [Unknown]

NARRATIVE: CASE EVENT DATE: 201402
